FAERS Safety Report 12642781 (Version 4)
Quarter: 2017Q1

REPORT INFORMATION
  Report Type: Spontaneous
  Country: US (occurrence: US)
  Receive Date: 20160811
  Receipt Date: 20170317
  Transmission Date: 20170428
  Serious: Yes (Other)
  Sender: FDA-Public Use
  Company Number: PHHY2016US109286

PATIENT
  Sex: Female

DRUGS (3)
  1. ZOFRAN [Suspect]
     Active Substance: ONDANSETRON HYDROCHLORIDE
     Indication: VOMITING IN PREGNANCY
     Dosage: 8 MG, TID
     Route: 042
     Dates: start: 199803, end: 199805
  2. ZOFRAN [Suspect]
     Active Substance: ONDANSETRON HYDROCHLORIDE
     Indication: VOMITING IN PREGNANCY
     Dosage: 8 MG, TID
     Route: 065
     Dates: start: 199802, end: 199803
  3. ZOFRAN [Suspect]
     Active Substance: ONDANSETRON HYDROCHLORIDE
     Indication: VOMITING IN PREGNANCY
     Dosage: 4 MG, TID
     Route: 048
     Dates: start: 199805, end: 199809

REACTIONS (45)
  - Maternal exposure during pregnancy [Unknown]
  - Hyperkeratosis [Unknown]
  - Back pain [Unknown]
  - Rash [Unknown]
  - Vertebral foraminal stenosis [Unknown]
  - Cystocele [Unknown]
  - Product use issue [Unknown]
  - Radiculopathy [Unknown]
  - Insomnia [Unknown]
  - Hypoaesthesia [Unknown]
  - Cervicitis [Unknown]
  - Pain in extremity [Unknown]
  - Raynaud^s phenomenon [Unknown]
  - Malignant melanoma [Unknown]
  - Hyperthyroidism [Unknown]
  - Chronic kidney disease [Unknown]
  - Incontinence [Unknown]
  - Spinal osteoarthritis [Unknown]
  - Spondylolisthesis [Unknown]
  - Telangiectasia [Unknown]
  - Paraesthesia [Unknown]
  - Emotional distress [Unknown]
  - Menometrorrhagia [Unknown]
  - Abdominal pain upper [Unknown]
  - Hyperplasia [Unknown]
  - Intervertebral disc protrusion [Unknown]
  - Sciatica [Unknown]
  - Intervertebral disc degeneration [Unknown]
  - Rectocele [Unknown]
  - Pelvic discomfort [Unknown]
  - Anxiety [Unknown]
  - Headache [Unknown]
  - Urethral disorder [Unknown]
  - Adenomyosis [Unknown]
  - Scoliosis [Unknown]
  - Spinal pain [Unknown]
  - Seborrhoeic keratosis [Unknown]
  - Gastrooesophageal reflux disease [Unknown]
  - Pollakiuria [Unknown]
  - Constipation [Unknown]
  - Renal failure [Unknown]
  - Parakeratosis [Unknown]
  - Intervertebral disc space narrowing [Unknown]
  - Anaemia [Unknown]
  - Depression [Unknown]
